FAERS Safety Report 4607255-9 (Version None)
Quarter: 2005Q1

REPORT INFORMATION
  Report Type: 
  Country: None (occurrence: None)
  Receive Date: 20050309
  Receipt Date: 20050216
  Transmission Date: 20050727
  Serious: Yes (Other)
  Sender: FDA-Public Use
  Company Number: EWC050242676

PATIENT
  Age: 65 Year
  Sex: Female

DRUGS (7)
  1. YENTREVE (DULOXETINE HYDROCHLORIDE) [Suspect]
     Indication: STRESS INCONTINENCE
     Dosage: 40 MG/ 2 DAY
     Dates: start: 20050131, end: 20050202
  2. INSULIN [Concomitant]
  3. GLICLAZIDE [Concomitant]
  4. EUTIROX (LEVOTHYROXINE) [Concomitant]
  5. NORVASC [Concomitant]
  6. SINVACOR (SIMVASTATIN RATIOPHARM) [Concomitant]
  7. XANAX [Concomitant]

REACTIONS (3)
  - HYPERGLYCAEMIA [None]
  - HYPERHIDROSIS [None]
  - MALAISE [None]
